FAERS Safety Report 4323182-9 (Version None)
Quarter: 2004Q1

REPORT INFORMATION
  Report Type: 
  Country: None (occurrence: None)
  Receive Date: 20040322
  Receipt Date: 20040310
  Transmission Date: 20041129
  Serious: Yes (Hospitalization, Other)
  Sender: FDA-Public Use
  Company Number: 2004007321

PATIENT
  Age: 74 Year
  Sex: Female
  Weight: 48 kg

DRUGS (10)
  1. LIPITOR [Suspect]
     Indication: HYPERLIPIDAEMIA
     Dosage: 5 MG, DAILY, ORAL
     Route: 048
     Dates: start: 20020701, end: 20040203
  2. BROTIZOLAM [Concomitant]
  3. SENNA LEAF [Concomitant]
  4. MAGNESIUM OXIDE [Concomitant]
  5. RHUBARB [Concomitant]
  6. CILNIDIPINE [Concomitant]
  7. RABEPRAZOLE SODIUM [Concomitant]
  8. URSODEOXYCHOLIC ACID [Concomitant]
  9. SINEMET [Concomitant]
  10. AMANTADINE HCL [Concomitant]

REACTIONS (10)
  - ACTIVITIES OF DAILY LIVING IMPAIRED [None]
  - ASPARTATE AMINOTRANSFERASE INCREASED [None]
  - BLOOD LACTATE DEHYDROGENASE INCREASED [None]
  - C-REACTIVE PROTEIN INCREASED [None]
  - CEREBRAL ATHEROSCLEROSIS [None]
  - CHOLELITHIASIS [None]
  - INSOMNIA [None]
  - MOVEMENT DISORDER [None]
  - PARKINSON'S DISEASE [None]
  - RHABDOMYOLYSIS [None]
